FAERS Safety Report 6196731-6 (Version None)
Quarter: 2009Q2

REPORT INFORMATION
  Report Type: 
  Country: None (occurrence: None)
  Receive Date: 20090520
  Receipt Date: 20090514
  Transmission Date: 20091009
  Serious: Yes (Other)
  Sender: FDA-Public Use
  Company Number: US-MERCK-0807USA04311

PATIENT
  Age: 90 Year
  Sex: Female
  Weight: 64 kg

DRUGS (9)
  1. TIMOPTIC [Suspect]
     Indication: GLAUCOMA
     Route: 047
     Dates: start: 20080101, end: 20080529
  2. XALATAN [Suspect]
     Indication: GLAUCOMA
     Route: 065
  3. TRUSOPT [Concomitant]
     Route: 065
  4. PILOCARPINE [Concomitant]
     Route: 065
  5. CELEBREX [Suspect]
     Indication: BACK PAIN
     Route: 065
  6. CELEBREX [Suspect]
     Indication: ARTHRITIS
     Route: 065
  7. VASERETIC [Concomitant]
     Indication: BLOOD PRESSURE
     Route: 048
  8. VITAMINS (UNSPECIFIED) [Concomitant]
     Route: 065
  9. ALPHAGAN [Suspect]
     Indication: INTRAOCULAR PRESSURE TEST
     Route: 047
     Dates: start: 20080408

REACTIONS (10)
  - BLOOD PRESSURE DECREASED [None]
  - DIZZINESS [None]
  - DRUG INTERACTION [None]
  - FATIGUE [None]
  - FEELING ABNORMAL [None]
  - GLAUCOMA [None]
  - HEART RATE DECREASED [None]
  - INTRAOCULAR PRESSURE INCREASED [None]
  - PALPITATIONS [None]
  - SOMNOLENCE [None]
